FAERS Safety Report 14037521 (Version 1)
Quarter: 2017Q4

REPORT INFORMATION
  Report Type: Spontaneous
  Country: US (occurrence: US)
  Receive Date: 20171003
  Receipt Date: 20171003
  Transmission Date: 20180321
  Serious: Yes (Other)
  Sender: FDA-Public Use
  Company Number: None

PATIENT
  Age: 60 Year
  Sex: Female
  Weight: 60.75 kg

DRUGS (1)
  1. BOTOX [Suspect]
     Active Substance: ONABOTULINUMTOXINA
     Indication: BLEPHAROSPASM
     Dosage: OTHER ROUTE:INJECTION AROUND EYES?
     Dates: start: 20170927, end: 20170927

REACTIONS (8)
  - Impaired driving ability [None]
  - Headache [None]
  - Dizziness [None]
  - Sinus disorder [None]
  - Balance disorder [None]
  - Eyelid disorder [None]
  - Ocular hyperaemia [None]
  - Dry eye [None]

NARRATIVE: CASE EVENT DATE: 20170927
